FAERS Safety Report 7764318-7 (Version None)
Quarter: 2011Q3

REPORT INFORMATION
  Report Type: 
  Country: None (occurrence: None)
  Receive Date: 20110921
  Receipt Date: 20110909
  Transmission Date: 20111222
  Serious: Yes (Hospitalization)
  Sender: FDA-Public Use
  Company Number: US-UCBSA-037996

PATIENT
  Age: 35 Year
  Sex: Male
  Weight: 96 kg

DRUGS (3)
  1. KEPPRA [Suspect]
     Indication: EPILEPSY
     Dosage: 100 MG
     Route: 042
     Dates: start: 20100916
  2. KEPPRA [Suspect]
     Dosage: 3000 MG
     Dates: start: 20110726, end: 20110101
  3. KEPPRA [Suspect]
     Dosage: 2000 MG
     Dates: start: 20110902

REACTIONS (6)
  - SOMNOLENCE [None]
  - EPILEPSY [None]
  - AMNESIA [None]
  - GRAND MAL CONVULSION [None]
  - ANXIETY [None]
  - CARDIOMYOPATHY [None]
